FAERS Safety Report 6252058-5 (Version None)
Quarter: 2009Q2

REPORT INFORMATION
  Report Type: 
  Country: None (occurrence: None)
  Receive Date: 20090630
  Receipt Date: 20060228
  Transmission Date: 20091009
  Serious: Yes (Death, Hospitalization)
  Sender: FDA-Public Use
  Company Number: US-ROCHE-638770

PATIENT
  Sex: Male

DRUGS (24)
  1. ENFUVIRTIDE [Suspect]
     Route: 065
     Dates: start: 20040817, end: 20050722
  2. ENFUVIRTIDE [Suspect]
     Route: 065
     Dates: start: 20051228, end: 20060101
  3. VIREAD [Concomitant]
     Dosage: FREQUENCY: QD.
     Dates: start: 20040219, end: 20051228
  4. APTIVUS [Concomitant]
     Dates: start: 20040817, end: 20051026
  5. COMBIVIR [Concomitant]
     Dates: start: 20041222, end: 20051227
  6. NORVIR [Concomitant]
     Dates: start: 20051228, end: 20060101
  7. TRUVADA [Concomitant]
     Dosage: FREQUENCY: QD
     Dates: start: 20051228, end: 20060101
  8. PREZISTA [Concomitant]
     Dates: start: 20060112, end: 20060101
  9. BACTRIM DS [Concomitant]
     Dates: start: 20001214, end: 20060413
  10. DIFLUCAN [Concomitant]
     Dosage: FREQUENCY: QD
     Dates: start: 20030918, end: 20060413
  11. ZITHROMAX [Concomitant]
     Dosage: FREQUENCY: Q WK
     Dates: start: 20031016, end: 20060413
  12. ZITHROMAX [Concomitant]
     Dosage: START DATE: 2006
     Dates: end: 20060401
  13. CIPROFLOXACIN [Concomitant]
     Dates: start: 20050321, end: 20050331
  14. AMOXICILLIN [Concomitant]
     Dates: start: 20060201, end: 20060201
  15. AMOXICILLIN [Concomitant]
     Dates: start: 20060301, end: 20060321
  16. LEVAQUIN [Concomitant]
     Dosage: FREQUENCY: QD
     Dates: start: 20060322, end: 20060401
  17. BACTRIM [Concomitant]
     Dates: start: 20060415, end: 20060401
  18. CLARITHROMYCIN [Concomitant]
     Dosage: STOP DATE: APRIL 2006.
     Dates: start: 20060416
  19. IMIPENEM [Concomitant]
     Dosage: STOP DATE: APRIL 2006
     Dates: start: 20060416
  20. TOBRAMYCIN [Concomitant]
     Dates: start: 20060401, end: 20060401
  21. TOBRAMYCIN [Concomitant]
     Dates: start: 20060101, end: 20060101
  22. VANCOMYCIN [Concomitant]
     Dates: start: 20060401, end: 20060401
  23. ZOSYN [Concomitant]
     Dates: start: 20060401, end: 20060401
  24. ZOSYN [Concomitant]
     Dates: start: 20060101, end: 20060101

REACTIONS (3)
  - ACQUIRED IMMUNODEFICIENCY SYNDROME [None]
  - DIARRHOEA [None]
  - MUSCLE DISORDER [None]
